FAERS Safety Report 10642396 (Version 1)
Quarter: 2014Q4

REPORT INFORMATION
  Report Type: Spontaneous
  Country: GB (occurrence: None)
  Receive Date: 20141208
  Receipt Date: 20141208
  Transmission Date: 20150529
  Serious: Yes (Other)
  Sender: FDA-Public Use
  Company Number: ABR_01874_2014

PATIENT
  Age: 4 Year
  Sex: Female

DRUGS (2)
  1. LAMOTRIGINE (LAMOTRIGINE) [Suspect]
     Active Substance: LAMOTRIGINE
     Indication: TONIC CONVULSION
     Dosage: 1 YEAR 3 MONTHS
  2. TOPIRAMATE. [Concomitant]
     Active Substance: TOPIRAMATE

REACTIONS (5)
  - Atonic seizures [None]
  - Drooling [None]
  - Pseudobulbar palsy [None]
  - Dysarthria [None]
  - Dysphemia [None]
